FAERS Safety Report 8923935 (Version 1)
Quarter: 2012Q4

REPORT INFORMATION
  Report Type: 
  Country: US (occurrence: US)
  Receive Date: 20121126
  Receipt Date: 20121126
  Transmission Date: 20130627
  Serious: Yes (Congenital Anomaly, Other)
  Sender: FDA-Public Use
  Company Number: US-009507513-1005USA00386B1

PATIENT
  Sex: Male
  Weight: 3.15 kg

DRUGS (7)
  1. ISENTRESS [Suspect]
     Dosage: UNK UNK, qd
     Route: 064
     Dates: start: 20091114
  2. COMBIVIR [Suspect]
     Dosage: UNK, qd
     Route: 064
     Dates: start: 20090628, end: 20091113
  3. VIRAMUNE [Suspect]
     Dosage: UNK UNK, qd
     Route: 064
     Dates: start: 20090628, end: 20090712
  4. VIRAMUNE [Suspect]
     Dosage: 300 UNK, UNK
     Route: 064
     Dates: start: 20091113
  5. KALETRA [Suspect]
     Dosage: UNK UNK, qd
     Route: 064
     Dates: start: 20090720, end: 20091008
  6. KALETRA [Suspect]
     Dosage: UNK UNK, qd
     Route: 064
     Dates: start: 20091008
  7. VIREAD [Suspect]
     Dosage: UNK UNK, qd
     Route: 064
     Dates: start: 20091113

REACTIONS (2)
  - Adrenal cyst [Recovered/Resolved]
  - Foetal exposure during pregnancy [Recovered/Resolved]
